FAERS Safety Report 19132335 (Version 12)
Quarter: 2025Q1

REPORT INFORMATION
  Report Type: Report from Study
  Country: US (occurrence: US)
  Receive Date: 20210413
  Receipt Date: 20250226
  Transmission Date: 20250408
  Serious: Yes (Hospitalization, Other)
  Sender: TAKEDA
  Company Number: US-TAKEDA-US201925420

PATIENT
  Sex: Female
  Weight: 64 kg

DRUGS (10)
  1. LANADELUMAB [Suspect]
     Active Substance: LANADELUMAB
     Indication: Hereditary angioedema
     Dosage: 300 MILLIGRAM, Q2WEEKS
  2. LANADELUMAB [Suspect]
     Active Substance: LANADELUMAB
     Indication: Immune system disorder
  3. LANADELUMAB [Suspect]
     Active Substance: LANADELUMAB
  4. FIRAZYR [Suspect]
     Active Substance: ICATIBANT ACETATE
     Indication: Immune system disorder
  5. FIRAZYR [Suspect]
     Active Substance: ICATIBANT ACETATE
  6. FIRAZYR [Suspect]
     Active Substance: ICATIBANT ACETATE
  7. DILTIAZEM [Concomitant]
     Active Substance: DILTIAZEM
     Indication: Product used for unknown indication
  8. SERTRALINE [Concomitant]
     Active Substance: SERTRALINE HYDROCHLORIDE
     Indication: Product used for unknown indication
  9. HYDROCHLOROTHIAZIDE [Concomitant]
     Active Substance: HYDROCHLOROTHIAZIDE
     Indication: Product used for unknown indication
  10. DANAZOL [Concomitant]
     Active Substance: DANAZOL
     Indication: Product used for unknown indication

REACTIONS (14)
  - Abscess limb [Unknown]
  - Colitis [Unknown]
  - Fall [Unknown]
  - Hereditary angioedema [Unknown]
  - Weight increased [Unknown]
  - Nausea [Unknown]
  - Chest discomfort [Unknown]
  - Weight decreased [Unknown]
  - Stress [Unknown]
  - Feeling abnormal [Unknown]
  - Needle issue [Unknown]
  - Wrong technique in device usage process [Unknown]
  - Diarrhoea [Unknown]
  - Injection site swelling [Unknown]
